FAERS Safety Report 6240448-6 (Version None)
Quarter: 2009Q2

REPORT INFORMATION
  Report Type: 
  Country: None (occurrence: None)
  Receive Date: 20090618
  Receipt Date: 20090618
  Transmission Date: 20091009
  Serious: Yes (Other)
  Sender: FDA-Public Use
  Company Number: None

PATIENT
  Age: 55 Year
  Sex: Female
  Weight: 72.5755 kg

DRUGS (3)
  1. ZICAM EXTREAM COUGESTION RELIEF 12 HOUR ZICAM [Suspect]
     Indication: NASOPHARYNGITIS
     Dosage: 1-2 NASAL SPRAYS EACH NOSTRIL ONCE/DAY NASAL
     Route: 045
  2. ZICAM EXTREAM COUGESTION RELIEF 12 HOUR ZICAM [Suspect]
     Indication: PROPHYLAXIS
     Dosage: 1-2 NASAL SPRAYS EACH NOSTRIL ONCE/DAY NASAL
     Route: 045
  3. ZICAM INTENSE SINUS SELIEF MENTHOL + EUCALYPTUS ZICAM [Suspect]
     Indication: SINUS CONGESTION
     Dosage: 1-2 NASAL SPRAYS EACH  NOSTRIL ONCE/DAY OCCLUSIVE DRESSING
     Route: 046

REACTIONS (1)
  - ANOSMIA [None]
